FAERS Safety Report 7233281-X (Version None)
Quarter: 2011Q1

REPORT INFORMATION
  Report Type: 
  Country: None (occurrence: None)
  Receive Date: 20110119
  Receipt Date: 20110113
  Transmission Date: 20110831
  Serious: Yes (Other)
  Sender: FDA-Public Use
  Company Number: BR-SANOFI-AVENTIS-2010SA073603

PATIENT
  Sex: Female

DRUGS (5)
  1. METFORMIN [Concomitant]
     Route: 048
  2. FORTEN [Concomitant]
     Indication: OSTEOPOROSIS
     Route: 058
     Dates: start: 20100717
  3. CALCIUM CARBONATE [Concomitant]
     Indication: OSTEOPOROSIS
     Route: 048
  4. LANTUS [Suspect]
     Indication: TYPE 2 DIABETES MELLITUS
     Route: 058
     Dates: start: 20090320
  5. INSULIN GLULISINE [Concomitant]
     Route: 058
     Dates: start: 20090320

REACTIONS (2)
  - NON-HODGKIN'S LYMPHOMA [None]
  - ANAEMIA [None]
